FAERS Safety Report 19021636 (Version 1)
Quarter: 2021Q1

REPORT INFORMATION
  Report Type: Spontaneous
  Country: US (occurrence: US)
  Receive Date: 20210318
  Receipt Date: 20210318
  Transmission Date: 20210420
  Serious: Yes (Hospitalization, Other)
  Sender: FDA-Public Use
  Company Number: US-PROCTER+GAMBLE-PH21000429

PATIENT
  Age: 48 Year
  Sex: Female

DRUGS (1)
  1. DIPHENHYDRAMINE HCL [Suspect]
     Active Substance: DIPHENHYDRAMINE HYDROCHLORIDE
     Dosage: 2 BOTTLES DAILY IN RECENT WEEKS
     Route: 048

REACTIONS (11)
  - Somnolence [Unknown]
  - Hyponatraemia [Unknown]
  - Blood sodium decreased [Recovered/Resolved]
  - Blood potassium decreased [Unknown]
  - Urine osmolarity decreased [Unknown]
  - Urine output increased [Recovering/Resolving]
  - Thirst [Unknown]
  - Lethargy [Unknown]
  - Gait disturbance [Unknown]
  - Overdose [Unknown]
  - Blood osmolarity decreased [Unknown]
